FAERS Safety Report 20976330 (Version 1)
Quarter: 2022Q2

REPORT INFORMATION
  Report Type: Spontaneous
  Country: CN (occurrence: CN)
  Receive Date: 20220617
  Receipt Date: 20220617
  Transmission Date: 20220721
  Serious: Yes (Hospitalization, Other)
  Sender: FDA-Public Use
  Company Number: None

PATIENT
  Age: 12 Year
  Sex: Female
  Weight: 40.5 kg

DRUGS (7)
  1. CYCLOPHOSPHAMIDE [Suspect]
     Active Substance: CYCLOPHOSPHAMIDE
     Indication: Anaplastic large-cell lymphoma
     Dosage: CYCLOPHOSPHAMIDE FOR INJECTION 0.26G + 0.9% SODIUM CHLORIDE INJECTION 250ML
     Route: 041
     Dates: start: 20220328, end: 20220328
  2. SODIUM CHLORIDE [Suspect]
     Active Substance: SODIUM CHLORIDE
     Indication: Medication dilution
     Dosage: CYCLOPHOSPHAMIDE FOR INJECTION 0.26G + 0.9% SODIUM CHLORIDE INJECTION 250ML
     Route: 041
     Dates: start: 20220328, end: 20220328
  3. SODIUM CHLORIDE [Suspect]
     Active Substance: SODIUM CHLORIDE
     Dosage: METHOTREXATE FOR INJECTION 3.9G + 0.9% SODIUM CHLORIDE INJECTION 575ML
     Route: 041
     Dates: start: 20220328, end: 20220328
  4. SODIUM CHLORIDE [Suspect]
     Active Substance: SODIUM CHLORIDE
     Dosage: VINORELBINE INJECTION 32MG + 0.9% SODIUM CHLORIDE INJECTION 75ML
     Route: 041
     Dates: start: 20220328
  5. METHOTREXATE [Suspect]
     Active Substance: METHOTREXATE
     Indication: Anaplastic large-cell lymphoma
     Dosage: METHOTREXATE FOR INJECTION 3.9G + 0.9% SODIUM CHLORIDE INJECTION 575ML
     Route: 041
     Dates: start: 20220328, end: 20220328
  6. VINORELBINE [Suspect]
     Active Substance: VINORELBINE TARTRATE
     Indication: Anaplastic large-cell lymphoma
     Dosage: VINORELBINE INJECTION 32MG + 0.9% SODIUM CHLORIDE INJECTION 75ML
     Route: 041
     Dates: start: 20220328, end: 20220328
  7. LEUCOVORIN CALCIUM [Concomitant]
     Active Substance: LEUCOVORIN CALCIUM
     Indication: Prophylaxis
     Dosage: UNK
     Route: 065
     Dates: start: 20220328

REACTIONS (2)
  - Drug-induced liver injury [Recovering/Resolving]
  - Myelosuppression [Recovering/Resolving]

NARRATIVE: CASE EVENT DATE: 20220404
